FAERS Safety Report 15739263 (Version 1)
Quarter: 2018Q4

REPORT INFORMATION
  Report Type: Spontaneous
  Country: IT (occurrence: IT)
  Receive Date: 20181219
  Receipt Date: 20181219
  Transmission Date: 20190205
  Serious: Yes (Other)
  Sender: FDA-Public Use
  Company Number: IT-B. BRAUN MEDICAL INC.-2060361

PATIENT
  Age: 88 Year
  Sex: Male

DRUGS (2)
  1. FIDATO [Concomitant]
     Active Substance: CEFTRIAXONE SODIUM
     Dates: start: 20180703, end: 20180716
  2. METRONIDAZOLE INJECTION USP (5 MG/ML) IN PAB? PLASTIC CONTAINER (NDA 0 [Suspect]
     Active Substance: METRONIDAZOLE
     Indication: OEDEMATOUS PANCREATITIS
     Dates: start: 20180712, end: 20180716

REACTIONS (2)
  - Pruritus [Unknown]
  - Erythema [Unknown]

NARRATIVE: CASE EVENT DATE: 20180716
